FAERS Safety Report 25137140 (Version 2)
Quarter: 2025Q4

REPORT INFORMATION
  Report Type: Report from Study
  Country: US (occurrence: US)
  Receive Date: 20250329
  Receipt Date: 20251126
  Transmission Date: 20260117
  Serious: Yes (Other)
  Sender: ABBVIE
  Company Number: US-ABBVIE-6196148

PATIENT
  Age: 60 Year
  Sex: Male

DRUGS (1)
  1. RINVOQ [Suspect]
     Active Substance: UPADACITINIB
     Indication: Colitis ulcerative
     Route: 048
     Dates: start: 20231108

REACTIONS (5)
  - Umbilicoplasty [Recovering/Resolving]
  - Eye operation [Recovered/Resolved]
  - Eye operation [Recovered/Resolved]
  - Abdominal operation [Unknown]
  - Abdominal operation [Unknown]

NARRATIVE: CASE EVENT DATE: 20231201
